FAERS Safety Report 5167021-5 (Version None)
Quarter: 2006Q4

REPORT INFORMATION
  Report Type: 
  Country: None (occurrence: None)
  Receive Date: 20061207
  Receipt Date: 20060327
  Transmission Date: 20070319
  Serious: Yes (Life-Threatening, Other)
  Sender: FDA-Public Use
  Company Number: 2006PK00568

PATIENT
  Age: 5991 Day
  Sex: Female
  Weight: 44.3 kg

DRUGS (6)
  1. MERONEM [Suspect]
     Indication: PNEUMONIA
     Route: 042
     Dates: start: 20060120, end: 20060129
  2. ERGENYL [Interacting]
     Indication: EPILEPSY
     Route: 048
  3. METRONIDAZOLE [Concomitant]
     Indication: PNEUMONIA
     Route: 042
     Dates: start: 20060116, end: 20060125
  4. UNACID [Concomitant]
     Indication: PNEUMONIA
     Route: 042
     Dates: start: 20060116, end: 20060120
  5. TOBRAMYCIN SULFATE [Concomitant]
     Indication: PNEUMONIA
     Route: 042
     Dates: start: 20060116, end: 20060122
  6. TOBRAMYCIN [Concomitant]
     Indication: PNEUMONIA
     Dates: start: 20060116

REACTIONS (2)
  - DRUG INTERACTION [None]
  - GRAND MAL CONVULSION [None]
